FAERS Safety Report 10061620 (Version 1)
Quarter: 2014Q2

REPORT INFORMATION
  Report Type: Spontaneous
  Country: JP (occurrence: JP)
  Receive Date: 20140407
  Receipt Date: 20140407
  Transmission Date: 20141212
  Serious: Yes (Other)
  Sender: FDA-Public Use
  Company Number: JP-SA-2014SA041397

PATIENT
  Sex: Female

DRUGS (1)
  1. ALLEGRA FX [Suspect]
     Route: 048

REACTIONS (4)
  - Palpitations [Recovered/Resolved]
  - Dyspnoea [Recovered/Resolved]
  - Malaise [Unknown]
  - Dizziness [Unknown]
